FAERS Safety Report 19004787 (Version 1)
Quarter: 2021Q1

REPORT INFORMATION
  Report Type: Spontaneous
  Country: US (occurrence: US)
  Receive Date: 20210312
  Receipt Date: 20210312
  Transmission Date: 20210420
  Serious: Yes (Hospitalization, Other)
  Sender: FDA-Public Use
  Company Number: US-OTSUKA-2021_007954

PATIENT
  Age: 69 Year
  Sex: Female
  Weight: 53 kg

DRUGS (14)
  1. FLUCONAZOLE. [Concomitant]
     Active Substance: FLUCONAZOLE
     Indication: PROPHYLAXIS
     Dosage: 200 MG, QD
     Route: 048
     Dates: start: 20200330
  2. LEVAQUIN [Concomitant]
     Active Substance: LEVOFLOXACIN
     Indication: PROPHYLAXIS
     Dosage: 500 MG, QD
     Route: 048
     Dates: start: 20200330
  3. DECITABINE. [Suspect]
     Active Substance: DECITABINE
     Indication: MYELODYSPLASTIC SYNDROME
     Dosage: 20 MG/M2, QD
     Route: 042
     Dates: start: 20200323, end: 20200327
  4. BUDESONIDE. [Concomitant]
     Active Substance: BUDESONIDE
     Indication: CHRONIC OBSTRUCTIVE PULMONARY DISEASE
     Dosage: UNK
     Route: 065
  5. PERFOROMIST [Concomitant]
     Active Substance: FORMOTEROL FUMARATE DIHYDRATE
     Indication: CHRONIC OBSTRUCTIVE PULMONARY DISEASE
     Dosage: UNK
     Route: 065
  6. LIPITOR [Concomitant]
     Active Substance: ATORVASTATIN CALCIUM
     Indication: HYPERLIPIDAEMIA
     Dosage: UNK
     Route: 065
  7. OXYCODONE [Concomitant]
     Active Substance: OXYCODONE
     Indication: THROMBOCYTOPENIA
     Dosage: 5 MG, EVERY 3?4 HOURS AS NEEDED
     Route: 048
     Dates: start: 20200406
  8. NEXIUM [Concomitant]
     Active Substance: ESOMEPRAZOLE MAGNESIUM
     Indication: GASTROOESOPHAGEAL REFLUX DISEASE
     Dosage: UNK
     Route: 065
  9. ALLOPURINOL. [Concomitant]
     Active Substance: ALLOPURINOL
     Indication: BLOOD URIC ACID INCREASED
     Dosage: 300 MG, QD
     Route: 048
     Dates: start: 20200403
  10. ASPIRIN (E.C.) [Concomitant]
     Active Substance: ASPIRIN
     Indication: FACTOR V LEIDEN CARRIER
     Dosage: UNK
     Route: 065
  11. VALTREX [Concomitant]
     Active Substance: VALACYCLOVIR HYDROCHLORIDE
     Indication: PROPHYLAXIS
     Dosage: 500 MG, QD
     Route: 048
     Dates: start: 20200330
  12. ALVOCIDIB [Suspect]
     Active Substance: ALVOCIDIB
     Indication: MYELODYSPLASTIC SYNDROME
     Dosage: 30 MG/M2 (48 MG) AS A 30?MINUTE
     Route: 040
     Dates: start: 20200330, end: 20200330
  13. ALVOCIDIB [Suspect]
     Active Substance: ALVOCIDIB
     Dosage: 60 MG/M2 (96 MG) 4?HOUR
     Route: 041
     Dates: start: 20200330, end: 20200330
  14. IBUPROFEN. [Concomitant]
     Active Substance: IBUPROFEN
     Indication: PAIN
     Dosage: 800 MG, TID (AS NEEDED)
     Route: 048
     Dates: start: 20200316, end: 20200406

REACTIONS (12)
  - Platelet count decreased [Unknown]
  - Urinary incontinence [Unknown]
  - Fatigue [Not Recovered/Not Resolved]
  - White blood cell count decreased [Unknown]
  - Pneumonia [Unknown]
  - Asthenia [Not Recovered/Not Resolved]
  - Neutrophil count decreased [Unknown]
  - Anal incontinence [Unknown]
  - Anaemia [Unknown]
  - Hypoalbuminaemia [Unknown]
  - Constipation [Unknown]
  - Failure to thrive [Recovered/Resolved with Sequelae]

NARRATIVE: CASE EVENT DATE: 2020
